FAERS Safety Report 21436421 (Version 1)
Quarter: 2022Q4

REPORT INFORMATION
  Report Type: Spontaneous
  Country: CN (occurrence: CN)
  Receive Date: 20221010
  Receipt Date: 20221010
  Transmission Date: 20230112
  Serious: Yes (Death, Other)
  Sender: FDA-Public Use
  Company Number: CN-NOVARTISPH-NVSC2022CN211255

PATIENT
  Age: 86 Year
  Sex: Female

DRUGS (2)
  1. TRAMETINIB [Suspect]
     Active Substance: TRAMETINIB
     Indication: BRAF V600E mutation positive
     Dosage: 2 MG, QD (ONE PILL/DAY)
     Route: 048
     Dates: end: 20220913
  2. DABRAFENIB [Suspect]
     Active Substance: DABRAFENIB
     Indication: BRAF V600E mutation positive
     Dosage: 75 MG, BID (TWO PILLS/TIME)
     Route: 048

REACTIONS (7)
  - Renal failure [Fatal]
  - Anal incontinence [Fatal]
  - Urinary incontinence [Fatal]
  - Hyperpyrexia [Not Recovered/Not Resolved]
  - Coating in mouth [Unknown]
  - Oedema [Recovering/Resolving]
  - Pyrexia [Recovered/Resolved]

NARRATIVE: CASE EVENT DATE: 20220911
